FAERS Safety Report 20391166 (Version 1)
Quarter: 2022Q1

REPORT INFORMATION
  Report Type: Spontaneous
  Country: JP (occurrence: JP)
  Receive Date: 20220128
  Receipt Date: 20220128
  Transmission Date: 20220423
  Serious: Yes (Hospitalization)
  Sender: FDA-Public Use
  Company Number: JP-PERRIGO-22JP000847

PATIENT
  Age: 49 Year
  Sex: Female

DRUGS (1)
  1. ACETAMINOPHEN [Suspect]
     Active Substance: ACETAMINOPHEN
     Indication: Product used for unknown indication
     Dosage: UNKNOWN, TWICE AT 4 AND 1 DAY BEFORE ADMISSION
     Route: 048

REACTIONS (2)
  - Toxic epidermal necrolysis [Recovering/Resolving]
  - Acute respiratory distress syndrome [Recovering/Resolving]
